FAERS Safety Report 4455953-2 (Version None)
Quarter: 2004Q3

REPORT INFORMATION
  Report Type: 
  Country: None (occurrence: None)
  Receive Date: 20040922
  Receipt Date: 20030915
  Transmission Date: 20050211
  Serious: Yes (Other)
  Sender: FDA-Public Use
  Company Number: BR-GLAXOSMITHKLINE-A0525942A

PATIENT
  Age: 51 Year
  Sex: Female
  Weight: 53.3 kg

DRUGS (1)
  1. AMOXIL [Suspect]
     Indication: DRUG USE FOR UNKNOWN INDICATION
     Dosage: 500MG VARIABLE DOSE
     Route: 048
     Dates: start: 20030816, end: 20030817

REACTIONS (4)
  - BLISTER [None]
  - ERYTHEMA [None]
  - FACE OEDEMA [None]
  - FATIGUE [None]
